FAERS Safety Report 15096712 (Version 1)
Quarter: 2018Q2

REPORT INFORMATION
  Report Type: Spontaneous
  Country: US (occurrence: US)
  Receive Date: 20180609
  Receipt Date: 20180609
  Transmission Date: 20180711
  Serious: No
  Sender: FDA-Public Use
  Company Number: None

PATIENT
  Age: 57 Year
  Sex: Female
  Weight: 58.05 kg

DRUGS (5)
  1. THEANINE [Concomitant]
     Active Substance: THEANINE
  2. L-THEANINE [Concomitant]
     Active Substance: DIETARY SUPPLEMENT
  3. PEG-3350 AND ELECTROLYTES [Suspect]
     Active Substance: POLYETHYLENE GLYCOL 3350\POTASSIUM CHLORIDE\SODIUM BICARBONATE\SODIUM CHLORIDE\SODIUM SULFATE\SODIUM SULFATE ANHYDROUS
     Indication: COLONOSCOPY
     Dosage: ?          QUANTITY:1 POWDER;OTHER FREQUENCY:8 OZ EVERY 10 MIN;?
     Route: 048
     Dates: start: 20180605, end: 20180605
  4. BENADRYL [Concomitant]
     Active Substance: DIPHENHYDRAMINE HYDROCHLORIDE
  5. BENADRYL [Concomitant]
     Active Substance: DIPHENHYDRAMINE HYDROCHLORIDE

REACTIONS (7)
  - Cough [None]
  - Hypersensitivity [None]
  - Swollen tongue [None]
  - Palpitations [None]
  - Throat irritation [None]
  - Feeling jittery [None]
  - Lip swelling [None]

NARRATIVE: CASE EVENT DATE: 20180605
